FAERS Safety Report 11588262 (Version 1)
Quarter: 2015Q4

REPORT INFORMATION
  Report Type: Spontaneous
  Country: US (occurrence: None)
  Receive Date: 20151001
  Receipt Date: 20151001
  Transmission Date: 20160304
  Serious: Yes (Hospitalization)
  Sender: FDA-Public Use
  Company Number: None

PATIENT
  Age: 72 Year
  Sex: Male
  Weight: 83.92 kg

DRUGS (1)
  1. ALENDRONATE SODIUM 70 MG [Suspect]
     Active Substance: ALENDRONATE SODIUM
     Indication: OSTEOPOROSIS
     Dates: start: 20140103, end: 20150422

REACTIONS (1)
  - Femur fracture [None]

NARRATIVE: CASE EVENT DATE: 20150419
